FAERS Safety Report 19808593 (Version 1)
Quarter: 2021Q3

REPORT INFORMATION
  Report Type: Spontaneous
  Country: US (occurrence: US)
  Receive Date: 20210908
  Receipt Date: 20210908
  Transmission Date: 20211014
  Serious: No
  Sender: FDA-Public Use
  Company Number: US-009507513-2109USA000938

PATIENT
  Sex: Male

DRUGS (3)
  1. PROVENTIL [Suspect]
     Active Substance: ALBUTEROL
     Indication: ASTHMA
     Dosage: 2 PUFFS A DAY AS NEEDED BY MOUTH
     Route: 048
     Dates: start: 2021, end: 20210901
  2. MOMETASONE FUROATE (+) FORMOTEROL FUMARATE [Suspect]
     Active Substance: FORMOTEROL FUMARATE\MOMETASONE FUROATE
     Dosage: UNK
     Dates: start: 20210902
  3. MOMETASONE FUROATE (+) FORMOTEROL FUMARATE [Suspect]
     Active Substance: FORMOTEROL FUMARATE\MOMETASONE FUROATE
     Dosage: 2 PUFFS A DAY AS NEEDED
     Dates: start: 2016, end: 2021

REACTIONS (12)
  - Drug ineffective [Unknown]
  - Packaging design issue [Unknown]
  - Product outer packaging issue [Unknown]
  - Inappropriate schedule of product administration [Unknown]
  - Heart rate increased [Recovered/Resolved]
  - Product lot number issue [Unknown]
  - Dysstasia [Recovered/Resolved]
  - Gait disturbance [Recovered/Resolved]
  - Manufacturing product shipping issue [Unknown]
  - Wrong product administered [Unknown]
  - Product use complaint [Unknown]
  - Dyspnoea [Recovered/Resolved]

NARRATIVE: CASE EVENT DATE: 2021
